FAERS Safety Report 5605997-X (Version None)
Quarter: 2008Q1

REPORT INFORMATION
  Report Type: 
  Country: None (occurrence: None)
  Receive Date: 20080129
  Receipt Date: 20080115
  Transmission Date: 20080703
  Serious: Yes (Hospitalization)
  Sender: FDA-Public Use
  Company Number: US-ELI_LILLY_AND_COMPANY-US200801002958

PATIENT
  Sex: Female

DRUGS (2)
  1. HUMULIN N [Suspect]
  2. HUMALOG [Suspect]

REACTIONS (2)
  - CARDIAC DISORDER [None]
  - CORONARY ARTERIAL STENT INSERTION [None]
